FAERS Safety Report 13609647 (Version 14)
Quarter: 2019Q4

REPORT INFORMATION
  Report Type: Spontaneous
  Country: US (occurrence: US)
  Receive Date: 20170602
  Receipt Date: 20191022
  Transmission Date: 20200122
  Serious: Yes (Hospitalization)
  Sender: FDA-Public Use
  Company Number: US-ACTELION-A-US2016-134463

PATIENT
  Age: 68 Year
  Sex: Female
  Weight: 65.76 kg

DRUGS (6)
  1. OPSUMIT [Suspect]
     Active Substance: MACITENTAN
     Dosage: UNK
     Route: 048
  2. REMODULIN [Suspect]
     Active Substance: TREPROSTINIL
     Indication: PRODUCT USED FOR UNKNOWN INDICATION
     Dosage: 29 NG/KG, PER MIN
     Route: 042
  3. REMODULIN [Suspect]
     Active Substance: TREPROSTINIL
     Dosage: 26 NG/KG, PER MIN
     Route: 042
  4. OPSUMIT [Suspect]
     Active Substance: MACITENTAN
     Indication: PULMONARY HYPERTENSION
     Dosage: 10 MG, QD
     Route: 048
     Dates: start: 20140211
  5. OPSUMIT [Suspect]
     Active Substance: MACITENTAN
     Dosage: 10 MG, QD
     Route: 048
  6. ADCIRCA [Concomitant]
     Active Substance: TADALAFIL
     Dosage: UNK

REACTIONS (26)
  - Fatigue [Unknown]
  - Back pain [Unknown]
  - Abdominal discomfort [Unknown]
  - Laryngitis [Unknown]
  - Pain in extremity [Recovering/Resolving]
  - Headache [Unknown]
  - Osteoarthritis [Unknown]
  - Muscle strain [Recovering/Resolving]
  - Feeling abnormal [Unknown]
  - Pain [Unknown]
  - Arthritis [Unknown]
  - Muscle discomfort [Unknown]
  - Cough [Recovering/Resolving]
  - Device breakage [Unknown]
  - Product dose omission [Unknown]
  - Asthenia [Unknown]
  - Wisdom teeth removal [Unknown]
  - Fibrin D dimer increased [Unknown]
  - Chest discomfort [Recovered/Resolved]
  - Muscle spasms [Unknown]
  - Catheter placement [Unknown]
  - Device occlusion [Unknown]
  - Dyspnoea [Recovered/Resolved]
  - Bronchitis [Unknown]
  - Arthralgia [Unknown]
  - Tooth abscess [Unknown]

NARRATIVE: CASE EVENT DATE: 201703
